FAERS Safety Report 20882592 (Version 1)
Quarter: 2022Q2

REPORT INFORMATION
  Report Type: Other
  Country: AE (occurrence: None)
  Receive Date: 20220527
  Receipt Date: 20220527
  Transmission Date: 20220720
  Serious: Yes (Other)
  Sender: FDA-Public Use
  Company Number: AE-ROCHE-3101997

PATIENT
  Sex: Male

DRUGS (1)
  1. MABTHERA [Suspect]
     Active Substance: RITUXIMAB
     Indication: Nephrotic syndrome
     Route: 065

REACTIONS (7)
  - Glomerulonephritis membranous [Unknown]
  - Hyperkinesia [Unknown]
  - Hypothyroidism [Unknown]
  - Osteonecrosis [Unknown]
  - Arthritis bacterial [Unknown]
  - Hyperlipidaemia [Unknown]
  - Off label use [Unknown]
